FAERS Safety Report 10189411 (Version 1)
Quarter: 2014Q2

REPORT INFORMATION
  Report Type: Spontaneous
  Country: US (occurrence: US)
  Receive Date: 20140522
  Receipt Date: 20140522
  Transmission Date: 20141212
  Serious: Yes (Hospitalization, Other)
  Sender: FDA-Public Use
  Company Number: US-ROXANE LABORATORIES, INC.-2014-RO-00780RO

PATIENT
  Age: 82 Year
  Sex: Female

DRUGS (2)
  1. DEXAMETHASONE [Suspect]
     Indication: ACUTE LYMPHOCYTIC LEUKAEMIA
     Route: 065
     Dates: start: 20130821
  2. SPRYCEL [Suspect]
     Indication: ACUTE LYMPHOCYTIC LEUKAEMIA
     Dosage: 140 MG
     Route: 048
     Dates: start: 20130821, end: 20130913

REACTIONS (4)
  - Pleural effusion [Recovered/Resolved]
  - Renal failure acute [Unknown]
  - Cardiac failure congestive [Unknown]
  - Hyponatraemia [Recovered/Resolved]
